FAERS Safety Report 13378205 (Version 22)
Quarter: 2018Q2

REPORT INFORMATION
  Report Type: Report from Study
  Country: TW (occurrence: TW)
  Receive Date: 20170328
  Receipt Date: 20180629
  Transmission Date: 20180711
  Serious: Yes (Hospitalization)
  Sender: FDA-Public Use
  Company Number: TW-ROCHE-1907649

PATIENT
  Age: 64 Year
  Sex: Male
  Weight: 70.9 kg

DRUGS (37)
  1. VITAMIN B12 [Concomitant]
     Active Substance: CYANOCOBALAMIN
     Route: 065
     Dates: start: 20170505, end: 20170505
  2. METOCLOPRAMIDE. [Concomitant]
     Active Substance: METOCLOPRAMIDE
     Indication: GASTROOESOPHAGEAL REFLUX DISEASE
     Dosage: 7.68 MG/2ML
     Route: 065
     Dates: start: 20170615, end: 20170620
  3. SENNOSIDES. [Concomitant]
     Active Substance: SENNOSIDES
     Indication: CONSTIPATION
     Route: 065
     Dates: start: 20170615
  4. THIAMINE HCL [Concomitant]
     Active Substance: THIAMINE HYDROCHLORIDE
     Indication: MALNUTRITION
     Dosage: 100MG/2ML
     Route: 065
     Dates: start: 20170616, end: 20170621
  5. VITAMIN B12 [Concomitant]
     Active Substance: CYANOCOBALAMIN
     Indication: PREMEDICATION
     Route: 065
     Dates: start: 20170301, end: 20170301
  6. MAGNESIUM OXIDE. [Concomitant]
     Active Substance: MAGNESIUM OXIDE
     Indication: CONSTIPATION
     Route: 065
     Dates: start: 20170614
  7. EPINEPHRINE. [Concomitant]
     Active Substance: EPINEPHRINE
     Indication: HAEMOPTYSIS
     Dosage: VPP?1 MG/1 ML
     Route: 065
     Dates: start: 20170620
  8. PANTOPRAZOLE [Concomitant]
     Active Substance: PANTOPRAZOLE
     Indication: GASTROOESOPHAGEAL REFLUX DISEASE
     Route: 042
     Dates: start: 20170615, end: 20170621
  9. PEMETREXED. [Suspect]
     Active Substance: PEMETREXED
     Indication: NON-SMALL CELL LUNG CANCER STAGE IV
     Dosage: THE MOST RECENT DOSE OF PEMETREXED 920 MG WAS ADMINISTERED ON 01/MAR/2017.?THE MOST RECENT DOSE OF P
     Route: 042
     Dates: start: 20170301
  10. ULTRACET [Concomitant]
     Active Substance: ACETAMINOPHEN\TRAMADOL HYDROCHLORIDE
     Indication: CHEST PAIN
     Route: 065
     Dates: start: 20170505
  11. OXYCONTIN [Concomitant]
     Active Substance: OXYCODONE HYDROCHLORIDE
     Indication: CHEST PAIN
     Route: 065
     Dates: start: 20170614
  12. LANSOPRAZOLE. [Concomitant]
     Active Substance: LANSOPRAZOLE
     Indication: GASTROOESOPHAGEAL REFLUX DISEASE
     Dosage: OD TAB
     Route: 065
     Dates: start: 20170621
  13. PROCTOSEDYL (TAIWAN) [Concomitant]
     Indication: HAEMORRHOIDS
     Dosage: PROCTOSEDYL SUPP
     Route: 065
     Dates: start: 20170622
  14. ACETAMINOPHEN. [Concomitant]
     Active Substance: ACETAMINOPHEN
     Indication: PYREXIA
     Route: 065
     Dates: start: 20170207, end: 20170323
  15. METOCLOPRAMIDE. [Concomitant]
     Active Substance: METOCLOPRAMIDE
     Route: 065
     Dates: start: 20170625
  16. MORPHINE SULFATE. [Concomitant]
     Active Substance: MORPHINE SULFATE
     Indication: CHEST PAIN
     Dosage: SR
     Route: 065
     Dates: start: 20170620
  17. POLYETHYLENE GLYCOL 4000 [Concomitant]
     Active Substance: POLYETHYLENE GLYCOL 4000
     Indication: CONSTIPATION
     Route: 065
     Dates: start: 20170621
  18. DEXAMETHASONE. [Concomitant]
     Active Substance: DEXAMETHASONE
     Indication: VOMITING
     Route: 065
     Dates: start: 20170301, end: 20170301
  19. DEXAMETHASONE. [Concomitant]
     Active Substance: DEXAMETHASONE
     Route: 065
     Dates: start: 20170411, end: 20170411
  20. ULTRACET [Concomitant]
     Active Substance: ACETAMINOPHEN\TRAMADOL HYDROCHLORIDE
     Indication: OROPHARYNGEAL PAIN
     Route: 065
     Dates: start: 20170315, end: 20170323
  21. MORPHINE HCL [Concomitant]
     Active Substance: MORPHINE HYDROCHLORIDE
     Indication: CHEST PAIN
     Dosage: 10 MG/1 ML
     Route: 065
     Dates: start: 20170615, end: 20170622
  22. FENTANYL. [Concomitant]
     Active Substance: FENTANYL
     Indication: CHEST PAIN
     Dosage: FENTANYL BUCCAL FILMS 0.31 MG/U
     Route: 065
     Dates: start: 20170623
  23. TRANSAMIN [Concomitant]
     Active Substance: TRANEXAMIC ACID
     Indication: HAEMOPTYSIS
     Route: 065
     Dates: start: 20170222, end: 20170301
  24. CARBOPLATIN. [Suspect]
     Active Substance: CARBOPLATIN
     Indication: NON-SMALL CELL LUNG CANCER STAGE IV
     Dosage: AREA UNDER THE CONCENTRATION-TIME CURVE (AUC) OF 6 MG/ML/MIN (PER PROTOCOL).?THE MOST RECENT DOSE OF
     Route: 042
     Dates: start: 20170301
  25. FOLIC ACID. [Concomitant]
     Active Substance: FOLIC ACID
     Indication: PREMEDICATION
     Route: 065
     Dates: start: 20170221
  26. GLIMEPIRIDE. [Concomitant]
     Active Substance: GLIMEPIRIDE
     Indication: DIABETES MELLITUS
     Route: 065
     Dates: start: 20170314
  27. METFORMIN [Concomitant]
     Active Substance: METFORMIN HYDROCHLORIDE
     Indication: DIABETES MELLITUS
     Route: 065
     Dates: start: 20170328
  28. DEPYRETIN [Concomitant]
     Active Substance: ACETAMINOPHEN
     Indication: PYREXIA
     Dosage: PP
     Route: 065
     Dates: start: 20170620, end: 20170623
  29. AMOXICILLIN/CLAVULANATE [Concomitant]
     Active Substance: AMOXICILLIN\CLAVULANATE POTASSIUM
     Dosage: AMOXICILLIN 875MG/CLAV.125MG*TAB
     Route: 065
     Dates: start: 20170623, end: 20170626
  30. DEXAMETHASONE. [Concomitant]
     Active Substance: DEXAMETHASONE
     Route: 065
     Dates: start: 20170525, end: 20170525
  31. FOLIC ACID. [Concomitant]
     Active Substance: FOLIC ACID
     Route: 065
     Dates: start: 20170525, end: 20170627
  32. TRANEXAMIC ACID. [Concomitant]
     Active Substance: TRANEXAMIC ACID
     Route: 065
     Dates: start: 20170623
  33. AMOXICILLIN/CLAVULANATE [Concomitant]
     Active Substance: AMOXICILLIN\CLAVULANATE POTASSIUM
     Indication: PYREXIA
     Dosage: AMOXYCILLIN 1 G/CLAV. 200 MG
     Route: 065
     Dates: start: 20170623
  34. EVAC ENEMA [Concomitant]
     Indication: CONSTIPATION
     Dosage: 118 ML/BOT
     Route: 065
     Dates: start: 20170615
  35. ATEZOLIZUMAB. [Suspect]
     Active Substance: ATEZOLIZUMAB
     Indication: NON-SMALL CELL LUNG CANCER STAGE IV
     Dosage: THE MOST RECENT DOSE OF ATEZOLIZUMAB (LOT NUMBER: 1150948) WAS ADMINISTERED ON 01/MAR/2017.?INTERRUP
     Route: 042
     Dates: start: 20170301
  36. TRANEXAMIC ACID. [Concomitant]
     Active Substance: TRANEXAMIC ACID
     Indication: HAEMOPTYSIS
     Dosage: 250 MG/5 ML
     Route: 065
     Dates: start: 20170616, end: 20170623
  37. IPRATROPIUM/SALBUTAMOL [Concomitant]
     Active Substance: ALBUTEROL\IPRATROPIUM BROMIDE
     Indication: HAEMOPTYSIS
     Route: 065
     Dates: start: 20170616, end: 20170620

REACTIONS (5)
  - Alanine aminotransferase increased [Recovered/Resolved]
  - Pneumonia [Recovered/Resolved]
  - Pharyngitis [Recovered/Resolved]
  - Oesophagitis [Recovered/Resolved]
  - Oesophagitis [Recovering/Resolving]

NARRATIVE: CASE EVENT DATE: 20170314
